FAERS Safety Report 9752207 (Version 1)
Quarter: 2013Q4

REPORT INFORMATION
  Report Type: Spontaneous
  Country: US (occurrence: None)
  Receive Date: 20131212
  Receipt Date: 20131212
  Transmission Date: 20140711
  Serious: Yes (Disabling)
  Sender: FDA-Public Use
  Company Number: None

PATIENT
  Sex: Female
  Weight: 56.7 kg

DRUGS (1)
  1. PANTOPRAZOLE SODIUM [Suspect]

REACTIONS (18)
  - No adverse event [None]
  - Vomiting [None]
  - Nausea [None]
  - Weight decreased [None]
  - Alopecia [None]
  - Stomatitis [None]
  - Pyrexia [None]
  - Abdominal pain upper [None]
  - Myalgia [None]
  - Arthralgia [None]
  - Fatigue [None]
  - Heart rate irregular [None]
  - Erythema [None]
  - Blister [None]
  - Skin exfoliation [None]
  - Back pain [None]
  - Fall [None]
  - Contusion [None]
